FAERS Safety Report 14446942 (Version 1)
Quarter: 2018Q1

REPORT INFORMATION
  Report Type: Other
  Country: HK (occurrence: HK)
  Receive Date: 20180126
  Receipt Date: 20180126
  Transmission Date: 20180509
  Serious: Yes (Hospitalization, Other)
  Sender: FDA-Public Use
  Company Number: HK-ACIC FINE CHEMICALS INC-2040854

PATIENT
  Age: 43 Year
  Sex: Female

DRUGS (1)
  1. TRANEXAMIC ACID. [Suspect]
     Active Substance: TRANEXAMIC ACID
     Indication: MENORRHAGIA
     Route: 048

REACTIONS (5)
  - Renal pain [Recovered/Resolved]
  - Hydronephrosis [Recovered/Resolved]
  - Anuria [Recovered/Resolved]
  - Thrombosis [Recovered/Resolved]
  - Blood creatinine increased [Recovered/Resolved]
